FAERS Safety Report 12141063 (Version 1)
Quarter: 2016Q1

REPORT INFORMATION
  Report Type: Spontaneous
  Country: US (occurrence: US)
  Receive Date: 20160303
  Receipt Date: 20160303
  Transmission Date: 20160526
  Serious: No
  Sender: FDA-Public Use
  Company Number: US-PFIZER INC-2016128173

PATIENT
  Age: 73 Year
  Sex: Female

DRUGS (1)
  1. IBRANCE [Suspect]
     Active Substance: PALBOCICLIB
     Indication: BREAST CANCER FEMALE
     Dosage: 125 MG,  DAILY X 21 DAYS
     Route: 048
     Dates: start: 20150604

REACTIONS (2)
  - Breast cancer female [Unknown]
  - Disease progression [Unknown]

NARRATIVE: CASE EVENT DATE: 20160226
